FAERS Safety Report 11393624 (Version 7)
Quarter: 2020Q3

REPORT INFORMATION
  Report Type: Spontaneous
  Country: FR (occurrence: FR)
  Receive Date: 20150819
  Receipt Date: 20200810
  Transmission Date: 20201102
  Serious: Yes (Death, Life-Threatening, Hospitalization, Other)
  Sender: FDA-Public Use
  Company Number: FR-PFIZER INC-2015270040

PATIENT
  Age: 11 Year
  Sex: Female
  Weight: 38 kg

DRUGS (10)
  1. ADVIL [Suspect]
     Active Substance: IBUPROFEN
     Indication: HEADACHE
     Dosage: UNK
     Route: 048
     Dates: start: 20150606, end: 20150607
  2. ADVIL [Suspect]
     Active Substance: IBUPROFEN
     Indication: PYREXIA
     Dosage: UNK, 4X/DAY (12 GRADUATIONS 4X/DAY)
     Route: 048
     Dates: start: 20150530, end: 20150605
  3. AMOXICILLINE [AMOXICILLIN SODIUM] [Suspect]
     Active Substance: AMOXICILLIN SODIUM
     Dosage: UNK
     Dates: start: 20150530, end: 20150605
  4. CLAMOXYL (AMOXICILLIN) [Suspect]
     Active Substance: AMOXICILLIN
     Dosage: 1 G, 2X/DAY
     Route: 048
     Dates: start: 20150614, end: 20150615
  5. IMODIUM [Suspect]
     Active Substance: LOPERAMIDE HYDROCHLORIDE
     Dosage: 1 DF, 3X/DAY
     Route: 048
     Dates: start: 20150530, end: 20150605
  6. ADVIL [Suspect]
     Active Substance: IBUPROFEN
     Dosage: UNK
     Dates: start: 20150614, end: 20150614
  7. BISEPTINE [BENZALKONIUM CHLORIDE;BENZYL ALCOHOL;CHLORHEXIDINE] [Concomitant]
  8. DOLIPRANE [Suspect]
     Active Substance: ACETAMINOPHEN
     Dosage: 1 DF, 4X/DAY
     Dates: start: 20150530, end: 20150605
  9. ADVIL [Suspect]
     Active Substance: IBUPROFEN
     Dosage: UNK
     Route: 048
     Dates: start: 20150613, end: 20150613
  10. DOLIPRANE [Suspect]
     Active Substance: ACETAMINOPHEN
     Dosage: UNK
     Route: 048
     Dates: start: 20150614, end: 20150615

REACTIONS (20)
  - Pneumonia [Unknown]
  - Injury corneal [Not Recovered/Not Resolved]
  - Rash [Not Recovered/Not Resolved]
  - Calculus bladder [Unknown]
  - Obliterative bronchiolitis [Not Recovered/Not Resolved]
  - Oesophageal stenosis [Not Recovered/Not Resolved]
  - Withdrawal syndrome [Not Recovered/Not Resolved]
  - Post-traumatic stress disorder [Not Recovered/Not Resolved]
  - Toxic epidermal necrolysis [Not Recovered/Not Resolved]
  - Candida sepsis [Not Recovered/Not Resolved]
  - Tonsillitis streptococcal [Not Recovered/Not Resolved]
  - Alanine aminotransferase increased [Not Recovered/Not Resolved]
  - Pancreatitis chronic [Fatal]
  - Hypertension [Not Recovered/Not Resolved]
  - Respiratory disorder [Not Recovered/Not Resolved]
  - Acute respiratory failure [Not Recovered/Not Resolved]
  - Skin exfoliation [Not Recovered/Not Resolved]
  - Respiratory failure [Fatal]
  - Bone infarction [Not Recovered/Not Resolved]
  - Gamma-glutamyltransferase increased [Not Recovered/Not Resolved]

NARRATIVE: CASE EVENT DATE: 2015
